FAERS Safety Report 24357145 (Version 1)
Quarter: 2024Q3

REPORT INFORMATION
  Report Type: Report from Study
  Country: US (occurrence: US)
  Receive Date: 20240924
  Receipt Date: 20240924
  Transmission Date: 20241017
  Serious: Yes (Hospitalization, Other)
  Sender: GILEAD
  Company Number: US-GILEAD-2024-0688181

PATIENT
  Sex: Female

DRUGS (6)
  1. AMBRISENTAN [Suspect]
     Active Substance: AMBRISENTAN
     Indication: HIV infection
     Dosage: 5 MG, QD
     Route: 065
     Dates: start: 20180828
  2. AMBRISENTAN [Suspect]
     Active Substance: AMBRISENTAN
     Indication: Pulmonary hypertension
     Dosage: 10 MG, QD
     Route: 065
     Dates: start: 20101001
  3. WARFARIN [Concomitant]
     Active Substance: WARFARIN
  4. ADCIRCA [Concomitant]
     Active Substance: TADALAFIL
     Dosage: UNK
     Dates: end: 20240918
  5. ORENITRAM [Concomitant]
     Active Substance: TREPROSTINIL
     Dosage: UNK
     Dates: end: 20240918
  6. UPTRAVI [Concomitant]
     Active Substance: SELEXIPAG

REACTIONS (3)
  - Internal haemorrhage [Unknown]
  - Nausea [Unknown]
  - Nasopharyngitis [Unknown]
